FAERS Safety Report 5636484-0 (Version None)
Quarter: 2008Q1

REPORT INFORMATION
  Report Type: 
  Country: None (occurrence: None)
  Receive Date: 20080225
  Receipt Date: 20080213
  Transmission Date: 20080703
  Serious: Yes (Hospitalization)
  Sender: FDA-Public Use
  Company Number: JP-AMGEN-US199029

PATIENT
  Sex: Female

DRUGS (11)
  1. ENBREL [Suspect]
     Indication: RHEUMATOID ARTHRITIS
     Route: 058
     Dates: start: 20050905, end: 20051108
  2. ENBREL [Suspect]
     Route: 058
     Dates: start: 20060101, end: 20060701
  3. RHEUMATREX [Suspect]
     Route: 048
     Dates: start: 20050622
  4. CINAL [Concomitant]
     Dosage: UNSPECIFIED
     Route: 048
  5. JUVELA [Concomitant]
     Route: 065
  6. FOLIAMIN [Concomitant]
     Route: 065
  7. VITANEURIN [Concomitant]
     Route: 065
  8. HALCION [Concomitant]
     Route: 065
  9. VOLTAREN [Concomitant]
     Dosage: UNSPECIFIED
     Route: 048
  10. ISCOTIN [Concomitant]
     Route: 048
     Dates: start: 20060905
  11. FERROMIA [Concomitant]
     Dosage: UNSPECIFIED
     Route: 048

REACTIONS (2)
  - PLEURISY [None]
  - STAPHYLOCOCCAL INFECTION [None]
